FAERS Safety Report 7677812-4 (Version None)
Quarter: 2011Q3

REPORT INFORMATION
  Report Type: 
  Country: None (occurrence: None)
  Receive Date: 20110811
  Receipt Date: 20110801
  Transmission Date: 20111222
  Serious: Yes (Hospitalization)
  Sender: FDA-Public Use
  Company Number: US-JNJFOC-20090307045

PATIENT
  Sex: Male
  Weight: 50.3 kg

DRUGS (7)
  1. REMICADE [Suspect]
     Dosage: 3RD DOSE
     Route: 042
     Dates: start: 20090212
  2. PREDNISONE [Concomitant]
     Dates: end: 20090101
  3. REMICADE [Suspect]
     Indication: COLITIS ULCERATIVE
     Dosage: 4TH DOSE
     Route: 042
     Dates: start: 20090226
  4. REMICADE [Suspect]
     Route: 042
     Dates: start: 20090118
  5. PREDNISONE [Concomitant]
     Dates: start: 20090101
  6. REMICADE [Suspect]
     Dosage: 2ND DOSE
     Route: 042
     Dates: start: 20090205
  7. PREDNISONE [Concomitant]
     Indication: ILL-DEFINED DISORDER
     Dates: start: 20090101, end: 20090101

REACTIONS (8)
  - ORTHOSTATIC HYPOTENSION [None]
  - RASH [None]
  - PAIN [None]
  - DIARRHOEA [None]
  - INFLAMMATORY BOWEL DISEASE [None]
  - URTICARIA [None]
  - HAEMORRHAGE [None]
  - INFUSION RELATED REACTION [None]
